FAERS Safety Report 22860523 (Version 6)
Quarter: 2023Q4

REPORT INFORMATION
  Report Type: Report from Study
  Country: US (occurrence: None)
  Receive Date: 20230824
  Receipt Date: 20231003
  Transmission Date: 20240110
  Serious: Yes (Hospitalization)
  Sender: FDA-Public Use
  Company Number: US-Eisai Medical Research-EC-2023-147209

PATIENT
  Age: 75 Year
  Sex: Male
  Weight: 95 kg

DRUGS (15)
  1. LENVATINIB [Suspect]
     Active Substance: LENVATINIB
     Indication: Renal cell carcinoma
     Dosage: STARTING DOSE AT: 20 MG, FLUCTUATED DOSAGE
     Route: 048
     Dates: start: 20230316, end: 20230719
  2. PEMBROLIZUMAB [Suspect]
     Active Substance: PEMBROLIZUMAB
     Indication: Renal cell carcinoma
     Route: 042
     Dates: start: 20230316, end: 20230720
  3. CYANOCOBALAMIN [Concomitant]
     Active Substance: CYANOCOBALAMIN
     Dates: start: 20211001
  4. FENOFIBRATE [Concomitant]
     Active Substance: FENOFIBRATE
     Dates: start: 20020101
  5. FINASTERIDE [Concomitant]
     Active Substance: FINASTERIDE
     Dates: start: 20060701
  6. GABAPENTIN [Concomitant]
     Active Substance: GABAPENTIN
     Dates: start: 20191231
  7. MAGNESIUM OXIDE [Concomitant]
     Active Substance: MAGNESIUM OXIDE
     Dates: start: 20170101
  8. MELATONIN [Concomitant]
     Active Substance: MELATONIN
     Dates: start: 20191231
  9. NEBIVOLOL [Concomitant]
     Active Substance: NEBIVOLOL
     Dates: start: 20210101
  10. OMEGA-3-ACID ETHYL ESTERS [Concomitant]
     Active Substance: OMEGA-3-ACID ETHYL ESTERS
     Dates: start: 20211001
  11. TAMSULOSIN HYDROCHLORIDE [Concomitant]
     Active Substance: TAMSULOSIN HYDROCHLORIDE
     Dates: start: 20150701
  12. ATORVASTATIN [Concomitant]
     Active Substance: ATORVASTATIN
     Dates: start: 20020101
  13. CHOLECALCIFEROL [Concomitant]
     Active Substance: CHOLECALCIFEROL
     Dates: start: 20210309
  14. LISINOPRIL [Concomitant]
     Active Substance: LISINOPRIL
     Dates: start: 20230501
  15. MIRTAZAPINE [Concomitant]
     Active Substance: MIRTAZAPINE
     Dates: start: 20230518

REACTIONS (2)
  - Chest pain [Recovering/Resolving]
  - Pulmonary embolism [Recovered/Resolved with Sequelae]

NARRATIVE: CASE EVENT DATE: 20230816
